FAERS Safety Report 9417872 (Version 2)
Quarter: 2013Q3

REPORT INFORMATION
  Report Type: Spontaneous
  Country: US (occurrence: US)
  Receive Date: 20130724
  Receipt Date: 20130808
  Transmission Date: 20140515
  Serious: Yes (Hospitalization)
  Sender: FDA-Public Use
  Company Number: US-TEVA-420883USA

PATIENT
  Sex: Female
  Weight: 118.04 kg

DRUGS (20)
  1. PRO-AIR [Suspect]
  2. QVAR [Suspect]
     Indication: ASTHMA
  3. METFORMIN [Concomitant]
     Indication: DIABETES MELLITUS
  4. HYDROCHLOROTHIAZIDE [Concomitant]
     Indication: HYPERTENSION
  5. LISINOPRIL [Concomitant]
     Indication: HYPERTENSION
  6. ATENOLOL [Concomitant]
     Indication: HYPERTENSION
  7. ASPIRIN [Concomitant]
     Indication: ANTICOAGULANT THERAPY
  8. LOVASTATIN [Concomitant]
     Indication: BLOOD CHOLESTEROL INCREASED
  9. CLARITIN [Concomitant]
     Indication: HYPERSENSITIVITY
  10. TRIAMCINOLONE [Concomitant]
     Indication: BURNING SENSATION
  11. CALCIUM W/VITAMIN D [Concomitant]
     Indication: VITAMIN SUPPLEMENTATION
  12. OMEPRAZOLE [Concomitant]
     Indication: GASTROOESOPHAGEAL REFLUX DISEASE
  13. NEUROGENIC PLUS [Concomitant]
     Indication: ARTHRITIS
  14. CAPSAICIN [Concomitant]
     Indication: DIABETIC NEUROPATHY
  15. LYRICA [Concomitant]
     Indication: DIABETIC NEUROPATHY
  16. CLOTRIMAZOLE [Concomitant]
     Indication: NAIL DISORDER
  17. OMEGA 3 FISH OIL [Concomitant]
     Indication: ARTHRITIS
  18. UNSPECIFIED MEDICATION [Concomitant]
     Indication: MUSCLE SPASMS
  19. SINEMET [Concomitant]
     Indication: MUSCLE SPASMS
  20. ARTIFICIAL TEARS [Concomitant]
     Indication: EYE DISORDER

REACTIONS (1)
  - Cerebrovascular accident [Unknown]
